FAERS Safety Report 9350949 (Version 1)
Quarter: 2013Q2

REPORT INFORMATION
  Report Type: Report from Study
  Country: US (occurrence: US)
  Receive Date: 20130617
  Receipt Date: 20130617
  Transmission Date: 20140414
  Serious: Yes (Other)
  Sender: FDA-Public Use
  Company Number: US-SANOFI-AVENTIS-2013SA060268

PATIENT
  Age: 47 Year
  Sex: Female

DRUGS (1)
  1. AUBAGIO [Suspect]
     Indication: MULTIPLE SCLEROSIS
     Route: 051
     Dates: start: 201301

REACTIONS (4)
  - Fibula fracture [Not Recovered/Not Resolved]
  - Fall [Unknown]
  - Drug dose omission [Unknown]
  - Alopecia [Not Recovered/Not Resolved]
